FAERS Safety Report 21575511 (Version 6)
Quarter: 2024Q1

REPORT INFORMATION
  Report Type: Other
  Country: CN (occurrence: None)
  Receive Date: 20221110
  Receipt Date: 20240305
  Transmission Date: 20240410
  Serious: Yes (Hospitalization, Other)
  Sender: FDA-Public Use
  Company Number: CN-ROCHE-2874350

PATIENT
  Age: 67 Year
  Sex: Male
  Weight: 82 kg

DRUGS (2)
  1. AVASTIN [Suspect]
     Active Substance: BEVACIZUMAB
     Indication: Non-small cell lung cancer
     Route: 041
     Dates: start: 20160305, end: 20221213
  2. AVASTIN [Suspect]
     Active Substance: BEVACIZUMAB
     Route: 041
     Dates: end: 20230425

REACTIONS (11)
  - Pneumonia [Unknown]
  - COVID-19 pneumonia [Recovered/Resolved]
  - Discomfort [Recovering/Resolving]
  - Arteriosclerosis coronary artery [Unknown]
  - Coronavirus test positive [Recovering/Resolving]
  - Cough [Recovered/Resolved]
  - Pyrexia [Recovered/Resolved]
  - Asthenia [Recovered/Resolved]
  - Nasopharyngitis [Recovered/Resolved]
  - Back pain [Unknown]
  - Bedridden [Unknown]

NARRATIVE: CASE EVENT DATE: 20210601
